FAERS Safety Report 13953105 (Version 3)
Quarter: 2018Q1

REPORT INFORMATION
  Report Type: Spontaneous
  Country: US (occurrence: US)
  Receive Date: 20170911
  Receipt Date: 20180307
  Transmission Date: 20180508
  Serious: Yes (Hospitalization, Other)
  Sender: FDA-Public Use
  Company Number: US-DENTSPLY-2017SCDP000080

PATIENT
  Age: 63 Year
  Sex: Male

DRUGS (2)
  1. ORAQIX [Suspect]
     Active Substance: LIDOCAINE\PRILOCAINE
     Dosage: UNK
     Route: 061
     Dates: start: 20170830
  2. ORAQIX [Suspect]
     Active Substance: LIDOCAINE\PRILOCAINE
     Indication: DENTAL LOCAL ANAESTHESIA
     Dosage: UNK
     Route: 061
     Dates: start: 20170830

REACTIONS (2)
  - Anaphylactic shock [Recovered/Resolved]
  - Respiratory arrest [Recovered/Resolved]

NARRATIVE: CASE EVENT DATE: 20170830
